FAERS Safety Report 9270683 (Version 1)
Quarter: 2013Q2

REPORT INFORMATION
  Report Type: Spontaneous
  Country: BR (occurrence: BR)
  Receive Date: 20130503
  Receipt Date: 20130503
  Transmission Date: 20140414
  Serious: Yes (Hospitalization)
  Sender: FDA-Public Use
  Company Number: BR-PFIZER INC-2013135647

PATIENT
  Age: 75 Year
  Sex: Female
  Weight: 57 kg

DRUGS (3)
  1. XALATAN [Suspect]
     Indication: GLAUCOMA
     Dosage: ONE DROP IN BOTH EYES TWICE A DAY (IN THE MORNING AND AT NIGHT)
     Route: 047
     Dates: start: 200904
  2. ALPHAGAN [Concomitant]
     Indication: GLAUCOMA
     Dosage: ONE DROP EACH EYE, EVERY 12 HOURS
     Route: 047
     Dates: start: 201302
  3. AZORGA [Concomitant]
     Indication: GLAUCOMA
     Dosage: ONE DROP EACH EYE, EVERY 12 HOURS
     Route: 047
     Dates: start: 201302

REACTIONS (2)
  - Cataract [Unknown]
  - Off label use [Not Recovered/Not Resolved]
